APPROVED DRUG PRODUCT: LIDOCAINE
Active Ingredient: LIDOCAINE
Strength: 5%
Dosage Form/Route: PATCH;TOPICAL
Application: A203265 | Product #001
Applicant: NOVEN PHARMACEUTICALS INC
Approved: Dec 1, 2020 | RLD: No | RS: No | Type: DISCN